FAERS Safety Report 11043301 (Version 1)
Quarter: 2015Q2

REPORT INFORMATION
  Report Type: Spontaneous
  Country: US (occurrence: None)
  Receive Date: 20150416
  Receipt Date: 20150416
  Transmission Date: 20150821
  Serious: No
  Sender: FDA-Public Use
  Company Number: None

PATIENT
  Age: 33 Year
  Sex: Female
  Weight: 61.24 kg

DRUGS (5)
  1. FISH OIL [Concomitant]
     Active Substance: FISH OIL
  2. CALCIUM [Concomitant]
     Active Substance: CALCIUM
  3. CLINDAMYCIN [Suspect]
     Active Substance: CLINDAMYCIN\CLINDAMYCIN PHOSPHATE
     Indication: LOCALISED INFECTION
     Dosage: 1
     Route: 048
     Dates: start: 20150129, end: 20150208
  4. PROBIOTICS [Concomitant]
     Active Substance: PROBIOTICS NOS
  5. MULTIVITAMIN [Concomitant]
     Active Substance: VITAMINS

REACTIONS (11)
  - Oropharyngeal pain [None]
  - Vulvovaginal burning sensation [None]
  - Abnormal faeces [None]
  - Vulvovaginal pruritus [None]
  - Pyrexia [None]
  - Vulvovaginal pain [None]
  - Flatulence [None]
  - Headache [None]
  - Diarrhoea [None]
  - Abdominal distension [None]
  - Tongue disorder [None]

NARRATIVE: CASE EVENT DATE: 20150129
